FAERS Safety Report 12957891 (Version 1)
Quarter: 2016Q4

REPORT INFORMATION
  Report Type: Report from Study
  Country: JP (occurrence: JP)
  Receive Date: 20161118
  Receipt Date: 20161118
  Transmission Date: 20170207
  Serious: Yes (Death, Other)
  Sender: FDA-Public Use
  Company Number: JP-GILEAD-2016-0243430

PATIENT
  Age: 10 Day
  Sex: Male
  Weight: 2.03 kg

DRUGS (20)
  1. EPOPROSTENOL SODIUM. [Concomitant]
     Active Substance: EPOPROSTENOL SODIUM
     Indication: PERSISTENT FOETAL CIRCULATION
     Dosage: 1-5 NG/KG/MIN, CO
     Dates: start: 20151221, end: 20151227
  2. DOPAMINE [Concomitant]
     Active Substance: DOPAMINE\DOPAMINE HYDROCHLORIDE
     Dosage: UNK
     Dates: start: 20151225, end: 20151227
  3. TRICHLORMETHIAZIDE [Concomitant]
     Active Substance: TRICHLORMETHIAZIDE
     Dosage: UNK
  4. NOBELBAR [Concomitant]
     Active Substance: PHENOBARBITAL SODIUM
     Dosage: UNK
     Dates: start: 20151224
  5. OMEPRAZOLE. [Concomitant]
     Active Substance: OMEPRAZOLE
     Dosage: UNK
     Dates: start: 20151224, end: 20151227
  6. ZOSYN [Concomitant]
     Active Substance: PIPERACILLIN SODIUM\TAZOBACTAM SODIUM
     Dosage: UNK
     Dates: start: 20151225, end: 20151227
  7. VICCILLIN                          /00000501/ [Concomitant]
     Dosage: UNK
     Dates: start: 20151218
  8. LEVOCARNITINE HYDROCHLORIDE [Concomitant]
     Active Substance: LEVOCARNITINE HYDROCHLORIDE
     Indication: NUTRITIONAL SUPPLEMENTATION
     Dosage: UNK
  9. MILRINONE [Concomitant]
     Active Substance: MILRINONE
     Dosage: UNK
     Dates: start: 20151221, end: 20151227
  10. FUROSEMIDE. [Concomitant]
     Active Substance: FUROSEMIDE
     Dosage: UNK
     Dates: start: 20151222
  11. ESLAX [Concomitant]
     Active Substance: ROCURONIUM BROMIDE
     Dosage: UNK
  12. DIAZOXIDE [Concomitant]
     Active Substance: DIAZOXIDE
     Dosage: UNK
  13. GENTAMICIN SULFATE. [Concomitant]
     Active Substance: GENTAMICIN SULFATE
     Dosage: UNK
     Dates: start: 20151218
  14. SAXIZON [Concomitant]
     Active Substance: HYDROCORTISONE SODIUM SUCCINATE
     Dosage: UNK
     Dates: start: 20151221, end: 20151227
  15. MEYLON [Concomitant]
     Active Substance: SODIUM BICARBONATE
     Indication: ELECTROLYTE SUBSTITUTION THERAPY
     Dosage: UNK
     Dates: start: 20151226, end: 20151227
  16. AMBRISENTAN [Suspect]
     Active Substance: AMBRISENTAN
     Indication: PERSISTENT FOETAL CIRCULATION
     Dosage: .5 MG, QD
     Route: 048
     Dates: start: 20151221, end: 20151227
  17. KAYTWO [Concomitant]
     Active Substance: MENATETRENONE
     Indication: NUTRITIONAL SUPPLEMENTATION
     Dosage: UNK
     Dates: start: 20151224, end: 20151224
  18. CALCICOL [Concomitant]
     Active Substance: CALCIUM GLUCONATE
     Indication: NUTRITIONAL SUPPLEMENTATION
     Dosage: UNK
     Dates: start: 20151221, end: 20151227
  19. DOBUTAMINE [Concomitant]
     Active Substance: DOBUTAMINE\DOBUTAMINE HYDROCHLORIDE
     Dosage: UNK
     Dates: start: 20151219, end: 20151226
  20. MORPHINE HYDROCHLORIDE [Concomitant]
     Active Substance: MORPHINE HYDROCHLORIDE
     Indication: PERSISTENT FOETAL CIRCULATION
     Dosage: UNK
     Dates: start: 20151218, end: 20151227

REACTIONS (2)
  - Off label use [Recovered/Resolved]
  - Pulmonary haemorrhage [Fatal]

NARRATIVE: CASE EVENT DATE: 201512
